FAERS Safety Report 7481637-2 (Version None)
Quarter: 2011Q2

REPORT INFORMATION
  Report Type: 
  Country: None (occurrence: None)
  Receive Date: 20110516
  Receipt Date: 20110510
  Transmission Date: 20111010
  Serious: Yes (Disabling)
  Sender: FDA-Public Use
  Company Number: FR-ROCHE-776458

PATIENT
  Age: 31 Year
  Sex: Female

DRUGS (2)
  1. CLONAZEPAM [Suspect]
     Indication: PAIN
     Dosage: DOSE: 2.5 MG/ML ORAL SOLUTION IN DROPS
     Route: 048
     Dates: start: 20101107
  2. AMITRIPTYLINE HCL [Suspect]
     Indication: PAIN
     Dosage: FREQUENCY DAILY
     Route: 048
     Dates: start: 20101107

REACTIONS (3)
  - PREGNANCY [None]
  - TRANSPOSITION OF THE GREAT VESSELS [None]
  - VENTRICULAR SEPTAL DEFECT [None]
